FAERS Safety Report 8840665 (Version 1)
Quarter: 2012Q4

REPORT INFORMATION
  Report Type: 
  Country: GB (occurrence: GB)
  Receive Date: 20121015
  Receipt Date: 20121015
  Transmission Date: 20130627
  Serious: Yes (Other)
  Sender: FDA-Public Use
  Company Number: PHHY2012GB091207

PATIENT
  Age: 89 Year
  Sex: Female

DRUGS (8)
  1. DONEPEZIL [Suspect]
     Indication: DEMENTIA ALZHEIMER^S TYPE
     Dosage: 5 mg, daily dose
     Dates: start: 20120713, end: 20120904
  2. DONEPEZIL [Suspect]
     Dosage: 10 mg, daily dose
     Dates: start: 2012
  3. ASPIRIN [Concomitant]
     Dosage: 40 mg, TID
  4. FUROSEMIDE [Concomitant]
     Dosage: 100 mg, TID
  5. LOSARTAN [Concomitant]
     Dosage: 200 mg, TID
  6. MOXONIDINE [Concomitant]
     Dosage: 32 mg, BID
  7. QVAR [Concomitant]
     Dosage: 32 mg, BID
  8. RISEDRONATE SODIUM [Concomitant]

REACTIONS (5)
  - Hypomania [Not Recovered/Not Resolved]
  - Delusion [Unknown]
  - Energy increased [Unknown]
  - Inappropriate affect [Unknown]
  - Insomnia [Unknown]
